FAERS Safety Report 9186983 (Version 2)
Quarter: 2013Q1

REPORT INFORMATION
  Report Type: Spontaneous
  Country: US (occurrence: US)
  Receive Date: 20130321
  Receipt Date: 20130322
  Transmission Date: 20140127
  Serious: Yes (Other)
  Sender: FDA-Public Use
  Company Number: US-RB-051294-13

PATIENT
  Sex: Female

DRUGS (6)
  1. MUCINEX FAST MAX ADULT COLD FLU THROAT (ACETAMINOPHEN) [Suspect]
     Indication: PRODUCT USED FOR UNKNOWN INDICATION
     Dosage: DOSE UNKNOWN
     Route: 048
     Dates: start: 20130308
  2. MUCINEX FAST MAX ADULT CONGESTION + COUGH [Suspect]
  3. MUCINEX FAST MAX ADULT CONGESTION + COUGH [Suspect]
  4. MUCINEX FAST MAX ADULT CONGESTION + COUGH [Suspect]
  5. AMOXICILLIN [Suspect]
     Indication: PRODUCT USED FOR UNKNOWN INDICATION
  6. DEPO PROVERA [Suspect]
     Indication: PRODUCT USED FOR UNKNOWN INDICATION

REACTIONS (7)
  - Hallucination [Recovered/Resolved]
  - Speech disorder [Recovered/Resolved]
  - Unevaluable event [Recovered/Resolved]
  - Condition aggravated [Recovered/Resolved]
  - Hallucination, auditory [None]
  - Swollen tongue [None]
  - Pyrexia [None]
